FAERS Safety Report 4553851-7 (Version None)
Quarter: 2005Q1

REPORT INFORMATION
  Report Type: 
  Country: None (occurrence: None)
  Receive Date: 20050113
  Receipt Date: 20050113
  Transmission Date: 20050727
  Serious: Yes (Other)
  Sender: FDA-Public Use
  Company Number: None

PATIENT
  Age: 66 Year
  Sex: Male
  Weight: 81.6475 kg

DRUGS (2)
  1. PINDOLOL [Suspect]
     Indication: HYPERTENSION
     Dosage: 5 Q D
  2. PLENDIL [Suspect]

REACTIONS (1)
  - MEDICATION ERROR [None]
